FAERS Safety Report 20407162 (Version 2)
Quarter: 2022Q2

REPORT INFORMATION
  Report Type: Report from Study
  Country: US (occurrence: US)
  Receive Date: 20220131
  Receipt Date: 20220411
  Transmission Date: 20220721
  Serious: Yes (Other)
  Sender: FDA-Public Use
  Company Number: US-NOVARTISPH-NVSC2022US017530

PATIENT
  Sex: Female

DRUGS (1)
  1. ILARIS [Suspect]
     Active Substance: CANAKINUMAB
     Indication: Pyrexia
     Dosage: 225 MG, QMO
     Route: 065
     Dates: start: 20191114

REACTIONS (4)
  - COVID-19 [Unknown]
  - Illness [Unknown]
  - Respiratory symptom [Unknown]
  - Pyrexia [Unknown]
